FAERS Safety Report 15865182 (Version 2)
Quarter: 2019Q1

REPORT INFORMATION
  Report Type: Report from Study
  Country: IT (occurrence: IT)
  Receive Date: 20190124
  Receipt Date: 20190129
  Transmission Date: 20190417
  Serious: Yes (Hospitalization)
  Sender: FDA-Public Use
  Company Number: IT-MYLANLABS-2019M1006312

PATIENT
  Age: 82 Year
  Sex: Female

DRUGS (12)
  1. PRAMIPEXOLE. [Concomitant]
     Active Substance: PRAMIPEXOLE
     Indication: PARKINSONISM
     Dosage: 0.26 MILLIGRAM
     Route: 048
  2. DIBASE [Concomitant]
     Active Substance: CHOLECALCIFEROL
     Dosage: (25.000 U.I./2,5 ML SOLUZIONE ORALE)
  3. TARGIN [Suspect]
     Active Substance: NALOXONE HYDROCHLORIDE\OXYCODONE HYDROCHLORIDE
     Indication: PAIN
     Dosage: 1 DOSAGE FORM, QD 5/2.5MILLIGRAM
     Route: 048
  4. MONOCINQUE [Concomitant]
     Active Substance: ISOSORBIDE MONONITRATE
     Indication: HYPERTENSION
     Dosage: 40 MILLIGRAM
     Route: 048
  5. ESOMEPRAZOLE SODIUM. [Concomitant]
     Active Substance: ESOMEPRAZOLE SODIUM
     Indication: GASTRITIS
     Dosage: 40 MILLIGRAM
     Route: 048
  6. MEDROL [Concomitant]
     Active Substance: METHYLPREDNISOLONE
     Dosage: UNK
  7. CLORISIP [Concomitant]
     Indication: HYPERTENSION
     Dosage: 32.5 MILLIGRAM (20/12.5 MILLIGRAM)
     Route: 048
  8. BISOPROLOL [Suspect]
     Active Substance: BISOPROLOL
     Indication: HYPERTENSION
     Dosage: 5 MILLIGRAM, QD
     Route: 048
  9. CARDIOASPIRIN [Concomitant]
     Active Substance: ASPIRIN
     Dosage: UNK
  10. LYRICA [Concomitant]
     Active Substance: PREGABALIN
     Dosage: UNK
  11. ISONIAZID. [Concomitant]
     Active Substance: ISONIAZID
     Dosage: UNK
  12. XANAX [Concomitant]
     Active Substance: ALPRAZOLAM

REACTIONS (6)
  - Dyspnoea [Recovered/Resolved]
  - Petechiae [Recovered/Resolved]
  - Thrombocytopenia [Recovered/Resolved]
  - Sopor [Recovered/Resolved]
  - Gravitational oedema [Recovered/Resolved]
  - Asthenia [Recovered/Resolved]

NARRATIVE: CASE EVENT DATE: 20180510
